FAERS Safety Report 8855982 (Version 1)
Quarter: 2012Q4

REPORT INFORMATION
  Report Type: Spontaneous
  Country: US (occurrence: None)
  Receive Date: 20121022
  Receipt Date: 20121022
  Transmission Date: 20130627
  Serious: No
  Sender: FDA-Public Use
  Company Number: None

PATIENT
  Age: 27 Year
  Sex: Female
  Weight: 61.24 kg

DRUGS (2)
  1. CYMBALTA [Suspect]
     Indication: POST-TRAUMATIC STRESS DISORDER
     Route: 048
     Dates: start: 201202
  2. CYMBALTA [Suspect]
     Indication: MAJOR DEPRESSIVE DISORDER NOS
     Route: 048
     Dates: start: 201202

REACTIONS (11)
  - Middle insomnia [None]
  - Heart rate increased [None]
  - Hyperhidrosis [None]
  - Energy increased [None]
  - Tremor [None]
  - Mania [None]
  - Nausea [None]
  - Vomiting [None]
  - Decreased appetite [None]
  - Headache [None]
  - Flight of ideas [None]
